FAERS Safety Report 5169483-6 (Version None)
Quarter: 2006Q4

REPORT INFORMATION
  Report Type: 
  Country: None (occurrence: None)
  Receive Date: 20061204
  Receipt Date: 20061128
  Transmission Date: 20070319
  Serious: Yes (Hospitalization)
  Sender: FDA-Public Use
  Company Number: 2006-216DP

PATIENT
  Age: 64 Year
  Sex: Male
  Weight: 89.8122 kg

DRUGS (5)
  1. LOPERAMIDE HCL [Suspect]
     Indication: ANTIDIARRHOEAL SUPPORTIVE CARE
     Dosage: 1 CAPSULE, 2 TO 3X A DAY
     Dates: start: 20061107, end: 20061108
  2. PREVACID [Concomitant]
  3. ZOCOR [Concomitant]
  4. BLOOD PRESSURE MEDICINE [Concomitant]
  5. TRICLOR [Concomitant]

REACTIONS (4)
  - CONSTIPATION [None]
  - DEHYDRATION [None]
  - INTESTINAL OBSTRUCTION [None]
  - VOMITING [None]
